FAERS Safety Report 9421948 (Version 1)
Quarter: 2013Q3

REPORT INFORMATION
  Report Type: Spontaneous
  Country: US (occurrence: US)
  Receive Date: 20130726
  Receipt Date: 20130726
  Transmission Date: 20140515
  Serious: Yes (Hospitalization)
  Sender: FDA-Public Use
  Company Number: US-009507513-1307USA011417

PATIENT
  Age: 50 Year
  Sex: Male
  Weight: 86.17 kg

DRUGS (8)
  1. VICTRELIS [Suspect]
     Indication: HEPATITIS C
     Dosage: FREQUENCY: TAKE 4 CAPSULES (800MG) BY MOUTH THREE TIMES A DAY WITH MEALS
     Route: 048
     Dates: start: 201303
  2. VICTRELIS [Suspect]
     Dosage: FREQUENCY: TAKE 4 CAPSULES (800MG) BY MOUTH THREE TIMES A DAY WITH MEALSUNK
     Route: 048
     Dates: start: 2013
  3. REBETOL [Suspect]
     Indication: HEPATITIS C
     Dosage: ALSO REPORTED FORMULATION: TABLET
  4. PEGASYS [Suspect]
     Indication: HEPATITIS C
  5. PRILOSEC [Concomitant]
     Dosage: FORMULATION: TABLET
  6. CITALOPRAM [Concomitant]
  7. DEPAKOTE [Concomitant]
     Dosage: DOSE: 125 MG DR
  8. HYDRALAZINE [Concomitant]
     Dosage: UNK

REACTIONS (18)
  - Gastroenteritis viral [Unknown]
  - Pericarditis [Unknown]
  - Pyrexia [Unknown]
  - Dehydration [Unknown]
  - Abdominal discomfort [Unknown]
  - Vomiting [Unknown]
  - Stomatitis [Unknown]
  - Anorectal discomfort [Unknown]
  - Dermatitis infected [Unknown]
  - Vomiting [Unknown]
  - Fatigue [Unknown]
  - Diarrhoea [Unknown]
  - Diarrhoea [Unknown]
  - Dysgeusia [Unknown]
  - Dysgeusia [Unknown]
  - Decreased appetite [Unknown]
  - Poor quality drug administered [Unknown]
  - Product physical issue [Unknown]
